FAERS Safety Report 8493904-4 (Version None)
Quarter: 2012Q3

REPORT INFORMATION
  Report Type: 
  Country: None (occurrence: None)
  Receive Date: 20120708
  Receipt Date: 20120704
  Transmission Date: 20120928
  Serious: Yes (Other)
  Sender: FDA-Public Use
  Company Number: VE-PFIZER INC-2011258716

PATIENT
  Sex: Male

DRUGS (2)
  1. LIPITOR [Suspect]
     Dosage: 20 MG, UNK
  2. VARENICLINE TARTRATE [Suspect]
     Dosage: UNK

REACTIONS (4)
  - NAUSEA [None]
  - ASTHENIA [None]
  - MYOCARDIAL INFARCTION [None]
  - SOMNOLENCE [None]
